FAERS Safety Report 10407702 (Version 2)
Quarter: 2015Q1

REPORT INFORMATION
  Report Type: Spontaneous
  Country: US (occurrence: None)
  Receive Date: 20140131
  Receipt Date: 20150129
  Transmission Date: 20150720
  Serious: Yes (Hospitalization)
  Sender: FDA-Public Use
  Company Number: 105063U

PATIENT
  Age: 56 Year
  Sex: Female
  Weight: 130.6 kg

DRUGS (6)
  1. KEPPRA [Suspect]
     Active Substance: LEVETIRACETAM
     Indication: SEIZURE
     Route: 048
  2. TOPIRAMATE. [Concomitant]
     Active Substance: TOPIRAMATE
  3. DILANTIN (PHENYTOIN) [Concomitant]
  4. ZOLOFT [Concomitant]
     Active Substance: SERTRALINE HYDROCHLORIDE
  5. LISINOPRIL. [Concomitant]
     Active Substance: LISINOPRIL
  6. EPITOL (CARBAMAZEPINE) [Concomitant]

REACTIONS (2)
  - Seizure [None]
  - Hospitalisation [None]

NARRATIVE: CASE EVENT DATE: 2013
